FAERS Safety Report 4618478-7 (Version None)
Quarter: 2005Q1

REPORT INFORMATION
  Report Type: 
  Country: None (occurrence: None)
  Receive Date: 20050323
  Receipt Date: 20050315
  Transmission Date: 20050727
  Serious: Yes (Hospitalization)
  Sender: FDA-Public Use
  Company Number: 200510293GDS

PATIENT
  Age: 77 Year
  Sex: Male
  Weight: 70.48 kg

DRUGS (6)
  1. DACARBAZINE [Suspect]
     Indication: NEOPLASM MALIGNANT
     Dosage: 1000 MG/M2, Q3WK, INTRAVENOUS
     Route: 042
     Dates: start: 20041123, end: 20050104
  2. ASPIRIN [Concomitant]
  3. TRAMADOL HCL [Concomitant]
  4. VOLTAREN [Concomitant]
  5. PARACETAMOL [Concomitant]
  6. SENOKOT [Concomitant]

REACTIONS (6)
  - ARTHRALGIA [None]
  - BACK PAIN [None]
  - METASTASES TO BONE [None]
  - METASTASES TO LIVER [None]
  - NAUSEA [None]
  - PAIN [None]
